FAERS Safety Report 5600324-6 (Version None)
Quarter: 2008Q1

REPORT INFORMATION
  Report Type: 
  Country: None (occurrence: None)
  Receive Date: 20080123
  Receipt Date: 20080116
  Transmission Date: 20080703
  Serious: Yes (Hospitalization, Other)
  Sender: FDA-Public Use
  Company Number: US-ASTRAZENECA-2008UW01252

PATIENT
  Sex: Female

DRUGS (1)
  1. NEXIUM [Suspect]
     Route: 048

REACTIONS (7)
  - DEPRESSION [None]
  - FATIGUE [None]
  - HEPATIC STEATOSIS [None]
  - HEPATOMEGALY [None]
  - NAUSEA [None]
  - PANCREATITIS [None]
  - VOMITING [None]
